FAERS Safety Report 5767959-1 (Version None)
Quarter: 2008Q2

REPORT INFORMATION
  Report Type: 
  Country: None (occurrence: None)
  Receive Date: 20080612
  Receipt Date: 20080602
  Transmission Date: 20081010
  Serious: Yes (Hospitalization)
  Sender: FDA-Public Use
  Company Number: US-ABBOTT-08P-163-0456044-00

PATIENT
  Sex: Female
  Weight: 90.8 kg

DRUGS (7)
  1. HUMIRA [Suspect]
     Indication: RHEUMATOID ARTHRITIS
     Route: 058
     Dates: start: 20070901, end: 20080507
  2. PREDNISONE TAB [Concomitant]
     Indication: RHEUMATOID ARTHRITIS
     Route: 048
     Dates: start: 19830101
  3. SIMVASTATIN [Concomitant]
     Indication: BLOOD CHOLESTEROL
     Route: 048
  4. LISINIPRIL [Concomitant]
     Indication: HYPERTENSION
     Route: 048
  5. DETROL LA [Concomitant]
     Indication: URINARY INCONTINENCE
     Route: 048
  6. ESOMEPRAZOLE MAGNESIUM [Concomitant]
     Indication: DRUG USE FOR UNKNOWN INDICATION
     Route: 048
  7. PROPACET 100 [Concomitant]
     Indication: PAIN
     Dosage: BID OR TID PRN
     Route: 048

REACTIONS (5)
  - ANOREXIA [None]
  - BRONCHITIS [None]
  - COLITIS ULCERATIVE [None]
  - NAUSEA [None]
  - URINARY TRACT INFECTION [None]
